FAERS Safety Report 4905892-5 (Version None)
Quarter: 2006Q1

REPORT INFORMATION
  Report Type: 
  Country: None (occurrence: None)
  Receive Date: 20060113
  Receipt Date: 20051201
  Transmission Date: 20060701
  Serious: No
  Sender: FDA-Public Use
  Company Number: 2005SP004397

PATIENT
  Age: 60 Year
  Sex: Female

DRUGS (8)
  1. LUNESTA [Suspect]
     Indication: INSOMNIA
     Dosage: 2 MG;HS;ORAL
     Route: 048
     Dates: start: 20051130
  2. POTASSIUM CHLORIDE [Concomitant]
  3. ISMO [Concomitant]
  4. DAYPRO [Concomitant]
  5. LOPID [Concomitant]
  6. SOMA [Concomitant]
  7. PLAVIX [Concomitant]
  8. DARVOCET-N 50 [Concomitant]

REACTIONS (1)
  - DYSGEUSIA [None]
